FAERS Safety Report 4365996-5 (Version None)
Quarter: 2004Q2

REPORT INFORMATION
  Report Type: 
  Country: None (occurrence: None)
  Receive Date: 20040526
  Receipt Date: 20040526
  Transmission Date: 20050107
  Serious: Yes (Other)
  Sender: FDA-Public Use
  Company Number: None

PATIENT
  Age: 62 Year
  Sex: Female
  Weight: 102 kg

DRUGS (9)
  1. IRON DEXTRAN [Suspect]
     Indication: ANAEMIA
     Dosage: 100 MG ONE TIME INTRAVENOUS
     Route: 042
     Dates: start: 20040402, end: 20040402
  2. LASIX [Concomitant]
  3. LISINOPRIL [Concomitant]
  4. GLUCOPHAGE [Concomitant]
  5. GLYNASE [Concomitant]
  6. ALDACTONE [Concomitant]
  7. SLOW-K [Concomitant]
  8. NEOSPORIN [Concomitant]
  9. TYLENOL W/ CODEINE [Concomitant]

REACTIONS (3)
  - COMA [None]
  - FALL [None]
  - FEELING ABNORMAL [None]
